FAERS Safety Report 8507103-0 (Version None)
Quarter: 2012Q3

REPORT INFORMATION
  Report Type: 
  Country: None (occurrence: None)
  Receive Date: 20120712
  Receipt Date: 20120706
  Transmission Date: 20120928
  Serious: Yes (Disabling, Other)
  Sender: FDA-Public Use
  Company Number: DE-ABBOTT-12P-062-0954043-00

PATIENT
  Sex: Female
  Weight: 71 kg

DRUGS (2)
  1. MARCUMAR [Concomitant]
     Indication: PRODUCT USED FOR UNKNOWN INDICATION
  2. ZEMPLAR [Suspect]
     Indication: HYPERPARATHYROIDISM SECONDARY
     Route: 042
     Dates: start: 20120421

REACTIONS (2)
  - VASCULAR CALCIFICATION [None]
  - OPTIC ISCHAEMIC NEUROPATHY [None]
